FAERS Safety Report 20691275 (Version 2)
Quarter: 2022Q2

REPORT INFORMATION
  Report Type: Report from Study
  Country: US (occurrence: US)
  Receive Date: 20220408
  Receipt Date: 20220415
  Transmission Date: 20220720
  Serious: No
  Sender: FDA-Public Use
  Company Number: US-BIOVITRUM-2021US10713

PATIENT
  Age: 5 Year
  Sex: Female

DRUGS (3)
  1. KINERET [Suspect]
     Active Substance: ANAKINRA
     Indication: Cryopyrin associated periodic syndrome
     Route: 058
     Dates: start: 20211006
  2. KINERET [Suspect]
     Active Substance: ANAKINRA
     Indication: Product used for unknown indication
  3. VITAMINS [Concomitant]
     Active Substance: VITAMINS

REACTIONS (9)
  - Fatigue [Unknown]
  - Urinary tract infection [Unknown]
  - Injection site scar [Unknown]
  - Injection site rash [Unknown]
  - Injection site pain [Unknown]
  - Accidental overdose [Unknown]
  - Product dose omission issue [Unknown]
  - Product storage error [Unknown]
  - Off label use [Not Recovered/Not Resolved]

NARRATIVE: CASE EVENT DATE: 20211006
